FAERS Safety Report 16923482 (Version 3)
Quarter: 2025Q1

REPORT INFORMATION
  Report Type: Spontaneous
  Country: US (occurrence: US)
  Receive Date: 20191016
  Receipt Date: 20250111
  Transmission Date: 20250409
  Serious: Yes (Hospitalization, Other)
  Sender: AUROBINDO
  Company Number: US-AUROBINDO-AUR-APL-2019-066006

PATIENT
  Age: 51 Year
  Sex: Female

DRUGS (13)
  1. VALGANCICLOVIR [Interacting]
     Active Substance: VALGANCICLOVIR
     Indication: Antiviral prophylaxis
     Route: 065
     Dates: start: 201512, end: 2016
  2. SULFAMETHOXAZOLE\TRIMETHOPRIM [Suspect]
     Active Substance: SULFAMETHOXAZOLE\TRIMETHOPRIM
     Indication: Antifungal prophylaxis
     Dosage: 1 DOSAGE FORM, ONCE A DAY
     Route: 065
     Dates: start: 201512, end: 2016
  3. TACROLIMUS [Interacting]
     Active Substance: TACROLIMUS
     Indication: Immunosuppressant drug therapy
     Dosage: 17 MILLIGRAM, TWO TIMES A DAY, TAC TROUGH LEVEL WAS REDUCED TO 6?7 NG/DL
     Route: 065
     Dates: start: 2016, end: 2016
  4. TACROLIMUS [Interacting]
     Active Substance: TACROLIMUS
     Route: 065
     Dates: start: 2016, end: 2016
  5. TACROLIMUS [Interacting]
     Active Substance: TACROLIMUS
     Route: 065
     Dates: end: 2016
  6. TACROLIMUS [Interacting]
     Active Substance: TACROLIMUS
     Route: 065
     Dates: start: 2016, end: 2016
  7. TACROLIMUS [Interacting]
     Active Substance: TACROLIMUS
     Route: 065
     Dates: start: 201512, end: 2016
  8. TACROLIMUS [Interacting]
     Active Substance: TACROLIMUS
     Dosage: 1 MILLIGRAM, TWO TIMES A DAY (TARGET TROUGH LEVEL OF 10?12 MG/DL)
     Route: 065
     Dates: start: 201512, end: 2016
  9. MYCOPHENOLATE MOFETIL [Interacting]
     Active Substance: MYCOPHENOLATE MOFETIL
     Indication: Immunosuppressant drug therapy
     Dosage: 1 GRAM, FOUR TIMES/DAY
     Route: 048
     Dates: start: 201512, end: 2016
  10. MYCOPHENOLATE MOFETIL [Interacting]
     Active Substance: MYCOPHENOLATE MOFETIL
     Route: 048
     Dates: start: 2016, end: 2016
  11. THYMOCYTE IMMUNE GLOBULIN NOS [Suspect]
     Active Substance: THYMOCYTE IMMUNE GLOBULIN NOS
     Indication: Immunosuppressant drug therapy
     Route: 042
     Dates: start: 201512
  12. PREDNISONE [Concomitant]
     Active Substance: PREDNISONE
     Indication: Immunosuppressant drug therapy
     Route: 065
     Dates: start: 201512, end: 2016
  13. PREDNISONE [Concomitant]
     Active Substance: PREDNISONE
     Dosage: 5 MILLIGRAM, ONCE A DAY
     Route: 065
     Dates: start: 2016, end: 2016

REACTIONS (5)
  - Tremor [Unknown]
  - Myelosuppression [Recovered/Resolved]
  - Drug interaction [Recovered/Resolved]
  - Hyperkalaemia [Unknown]
  - Neutropenia [Recovered/Resolved]

NARRATIVE: CASE EVENT DATE: 20160101
